FAERS Safety Report 9931234 (Version 1)
Quarter: 2014Q1

REPORT INFORMATION
  Report Type: Report from Study
  Country: US (occurrence: US)
  Receive Date: 20140228
  Receipt Date: 20140228
  Transmission Date: 20141002
  Serious: Yes (Other)
  Sender: FDA-Public Use
  Company Number: US-ROCHE-1340896

PATIENT
  Sex: Female

DRUGS (12)
  1. LUCENTIS [Suspect]
     Indication: AGE-RELATED MACULAR DEGENERATION
     Route: 050
     Dates: start: 20100519
  2. AVASTIN [Suspect]
     Indication: PRODUCT USED FOR UNKNOWN INDICATION
     Route: 065
     Dates: start: 20080804
  3. ALBUTEROL [Concomitant]
  4. CYTOMEL [Concomitant]
  5. LIPITOR [Concomitant]
  6. NORCO [Concomitant]
     Route: 065
  7. POTASSIUM CHLORIDE [Concomitant]
  8. SINGULAR [Concomitant]
  9. THYROXINE [Concomitant]
  10. XANAX [Concomitant]
  11. ZADITOR [Concomitant]
     Route: 065
  12. ZYMAR [Concomitant]
     Dosage: FOR 4 DAYS
     Route: 065

REACTIONS (13)
  - Macular oedema [Unknown]
  - Visual acuity reduced [Unknown]
  - Palpitations [Unknown]
  - Dyspnoea [Unknown]
  - Muscular weakness [Unknown]
  - Coordination abnormal [Unknown]
  - Local swelling [Unknown]
  - Musculoskeletal stiffness [Unknown]
  - Musculoskeletal pain [Unknown]
  - Depression [Unknown]
  - Night sweats [Unknown]
  - Headache [Unknown]
  - Anxiety [Unknown]
